FAERS Safety Report 13642796 (Version 1)
Quarter: 2017Q2

REPORT INFORMATION
  Report Type: Spontaneous
  Country: BE (occurrence: BE)
  Receive Date: 20170612
  Receipt Date: 20170612
  Transmission Date: 20170830
  Serious: Yes (Other)
  Sender: FDA-Public Use
  Company Number: BE-B. BRAUN MEDICAL INC.-2021822

PATIENT
  Age: 78 Year
  Sex: Male
  Weight: 71 kg

DRUGS (1)
  1. LIDOCAINE. [Suspect]
     Active Substance: LIDOCAINE
     Indication: BRONCHOSCOPY
     Route: 058
     Dates: start: 20170324, end: 20170324

REACTIONS (2)
  - Oxygen saturation decreased [None]
  - Dyspnoea [None]
